FAERS Safety Report 14250631 (Version 1)
Quarter: 2017Q4

REPORT INFORMATION
  Report Type: Spontaneous
  Country: US (occurrence: US)
  Receive Date: 20171205
  Receipt Date: 20171205
  Transmission Date: 20180321
  Serious: No
  Sender: FDA-Public Use
  Company Number: US-ENDO PHARMACEUTICALS INC-2017-004092

PATIENT
  Age: 41 Year
  Sex: Female

DRUGS (3)
  1. ALPRAZOLAM TABLETS 0.5 MG [Suspect]
     Active Substance: ALPRAZOLAM
     Indication: PANIC DISORDER
  2. GABAPENTIN. [Concomitant]
     Active Substance: GABAPENTIN
     Indication: ANXIETY
  3. ALPRAZOLAM TABLETS 0.5 MG [Suspect]
     Active Substance: ALPRAZOLAM
     Indication: ANXIETY
     Dosage: UNK UNK, BID (HALF TABLET TWICE A DAY TO 0.5MG (FULL TABLET) TWICE A DAY AS NEEDED)
     Route: 065
     Dates: end: 20170720

REACTIONS (5)
  - Sensation of foreign body [Unknown]
  - Dizziness [Recovered/Resolved]
  - Secretion discharge [Unknown]
  - Drug ineffective [Unknown]
  - Feeling abnormal [Recovered/Resolved]

NARRATIVE: CASE EVENT DATE: 201706
